FAERS Safety Report 10483145 (Version 1)
Quarter: 2014Q3

REPORT INFORMATION
  Report Type: Spontaneous
  Country: GB (occurrence: GB)
  Receive Date: 20140930
  Receipt Date: 20140930
  Transmission Date: 20150326
  Serious: Yes (Other)
  Sender: FDA-Public Use
  Company Number: GB-ACCORD-026134

PATIENT
  Age: 70 Year
  Sex: Female
  Weight: 78.8 kg

DRUGS (10)
  1. NOVORAPID [Concomitant]
     Active Substance: INSULIN ASPART
     Dates: start: 20140616, end: 20140616
  2. PARACETAMOL [Concomitant]
     Active Substance: ACETAMINOPHEN
     Dates: start: 20140616, end: 20140714
  3. EZETIMIBE. [Concomitant]
     Active Substance: EZETIMIBE
     Dates: start: 20140616, end: 20140616
  4. CODEINE [Concomitant]
     Active Substance: CODEINE
     Dates: start: 20140516, end: 20140613
  5. BUMETANIDE. [Concomitant]
     Active Substance: BUMETANIDE
     Dates: start: 20140422, end: 20140811
  6. COLCHICINE. [Concomitant]
     Active Substance: COLCHICINE
     Dates: start: 20140616, end: 20140714
  7. CLOPIDOGREL [Concomitant]
     Active Substance: CLOPIDOGREL BISULFATE
     Dates: start: 20140616, end: 20140616
  8. FOLIC ACID. [Concomitant]
     Active Substance: FOLIC ACID
     Dates: start: 20140616, end: 20140616
  9. ALLOPURINOL. [Concomitant]
     Active Substance: ALLOPURINOL
     Dates: start: 20140616, end: 20140811
  10. LETROZOLE. [Suspect]
     Active Substance: LETROZOLE
     Indication: PRODUCT USED FOR UNKNOWN INDICATION
     Dates: start: 20140516

REACTIONS (1)
  - Epistaxis [Recovered/Resolved]

NARRATIVE: CASE EVENT DATE: 20140801
